FAERS Safety Report 7443219-8 (Version None)
Quarter: 2011Q2

REPORT INFORMATION
  Report Type: 
  Country: None (occurrence: None)
  Receive Date: 20110428
  Receipt Date: 20110413
  Transmission Date: 20111010
  Serious: Yes (Hospitalization)
  Sender: FDA-Public Use
  Company Number: B0713342A

PATIENT
  Age: 24 Year
  Sex: Female
  Weight: 150 kg

DRUGS (3)
  1. ARIXTRA [Suspect]
     Indication: DEEP VEIN THROMBOSIS
     Dosage: 10MG PER DAY
     Route: 058
     Dates: start: 20110402, end: 20110408
  2. ADHESIVE TAPE [Suspect]
  3. INNOHEP [Suspect]
     Indication: DEEP VEIN THROMBOSIS
     Route: 058
     Dates: start: 20110409, end: 20110410

REACTIONS (3)
  - RASH [None]
  - SKIN LESION [None]
  - HYPERSENSITIVITY [None]
